FAERS Safety Report 9500650 (Version 2)
Quarter: 2013Q4

REPORT INFORMATION
  Report Type: Spontaneous
  Country: US (occurrence: US)
  Receive Date: 20130905
  Receipt Date: 20131203
  Transmission Date: 20140711
  Serious: Yes (Hospitalization, Other)
  Sender: FDA-Public Use
  Company Number: US-JNJFOC-20130815234

PATIENT
  Sex: Female
  Weight: 58.06 kg

DRUGS (3)
  1. DURAGESIC [Suspect]
     Indication: PAIN
     Route: 062
  2. DURAGESIC [Suspect]
     Indication: PAIN
     Route: 062
  3. ULTRACET [Suspect]
     Indication: BREAKTHROUGH PAIN
     Route: 048

REACTIONS (9)
  - Diabetic neuropathy [Not Recovered/Not Resolved]
  - Cerebrovascular accident [Recovering/Resolving]
  - Arthritis [Not Recovered/Not Resolved]
  - Body height decreased [Not Recovered/Not Resolved]
  - Drug ineffective [Unknown]
  - Product packaging issue [Unknown]
  - Product quality issue [Unknown]
  - Product adhesion issue [Unknown]
  - Product quality issue [Unknown]
